FAERS Safety Report 23575916 (Version 1)
Quarter: 2024Q1

REPORT INFORMATION
  Report Type: Spontaneous
  Country: CN (occurrence: CN)
  Receive Date: 20240228
  Receipt Date: 20240228
  Transmission Date: 20240409
  Serious: Yes (Other)
  Sender: FDA-Public Use
  Company Number: CN-PFIZER INC-PV202400026167

PATIENT
  Age: 5 Year
  Sex: Male

DRUGS (1)
  1. CYTARABINE [Suspect]
     Active Substance: CYTARABINE
     Indication: Burkitt^s lymphoma
     Dosage: 190 MG, 1X/DAY
     Route: 041
     Dates: start: 20240213, end: 20240217

REACTIONS (3)
  - Pruritus [Recovering/Resolving]
  - Body temperature increased [Recovering/Resolving]
  - Erythema [Recovering/Resolving]

NARRATIVE: CASE EVENT DATE: 20240217
